FAERS Safety Report 8924735 (Version 1)
Quarter: 2012Q4

REPORT INFORMATION
  Report Type: 
  Country: BR (occurrence: BR)
  Receive Date: 20121126
  Receipt Date: 20121126
  Transmission Date: 20130627
  Serious: Yes (Other)
  Sender: FDA-Public Use
  Company Number: BR-PFIZER INC-2012039070

PATIENT
  Age: 45 Year
  Sex: Male
  Weight: 73.5 kg

DRUGS (7)
  1. LYRICA [Suspect]
     Indication: KNEE PAIN
     Dosage: 3 capsules of 75mg daily
     Route: 048
     Dates: start: 201105
  2. LYRICA [Suspect]
     Indication: EXTREMITIES BURNING SENSATION OF
  3. LYRICA [Suspect]
     Indication: NEUROPATHY
  4. LORAX [Concomitant]
     Indication: INSOMNIA
     Dosage: 4 mg (two tablets of 2mg), daily
  5. ALPRAZOLAM [Concomitant]
     Dosage: UNK, 2x/day
  6. LINSEED [Concomitant]
     Indication: DRY EYE
     Dosage: UNK
  7. THIAMINE HYDROCHLORIDE [Concomitant]
     Dosage: UNK

REACTIONS (11)
  - Balance disorder [Not Recovered/Not Resolved]
  - Pollakiuria [Not Recovered/Not Resolved]
  - Constipation [Not Recovered/Not Resolved]
  - Faeces hard [Not Recovered/Not Resolved]
  - Arthralgia [Not Recovered/Not Resolved]
  - Dizziness [Not Recovered/Not Resolved]
  - Feeling drunk [Not Recovered/Not Resolved]
  - Fatigue [Not Recovered/Not Resolved]
  - Listless [Not Recovered/Not Resolved]
  - Nausea [Not Recovered/Not Resolved]
  - Flatulence [Not Recovered/Not Resolved]
